FAERS Safety Report 9299822 (Version 1)
Quarter: 2013Q1

REPORT INFORMATION
  Report Type: Spontaneous
  Country: US (occurrence: None)
  Receive Date: 20130107
  Receipt Date: 20130107
  Transmission Date: 20140127
  Serious: No
  Sender: FDA-Public Use
  Company Number: PHEH2012US020139

PATIENT
  Age: 41 Year
  Sex: Female
  Weight: 103.4 kg

DRUGS (6)
  1. GILENYA [Suspect]
     Indication: MULTIPLE SCLEROSIS
     Dates: start: 201203, end: 20121010
  2. SIMVASTATIN (SIMVASTATIN) [Concomitant]
  3. ONGLYZA (SAXAGLIPTIN HYDROCHLORIDE) [Concomitant]
  4. GLUCOPHAGE (METFORMIN HYDROCHLORIDE), 50MG [Concomitant]
  5. AMARYL (GLIMEPIRIDE) 4MG [Concomitant]
  6. VIT D3 (COLECALCIFEROL) 2000 IU [Concomitant]

REACTIONS (1)
  - Genital herpes [None]
